FAERS Safety Report 12655965 (Version 1)
Quarter: 2016Q3

REPORT INFORMATION
  Report Type: Spontaneous
  Country: US (occurrence: US)
  Receive Date: 20160816
  Receipt Date: 20160816
  Transmission Date: 20161109
  Serious: No
  Sender: FDA-Public Use
  Company Number: US-ROCHE-1730384

PATIENT
  Sex: Male

DRUGS (2)
  1. PEGASYS [Suspect]
     Active Substance: PEGINTERFERON ALFA-2A
     Indication: MYCOSIS FUNGOIDES
     Route: 058
     Dates: start: 20120418
  2. NAFTIN [Concomitant]
     Active Substance: NAFTIFINE HYDROCHLORIDE

REACTIONS (1)
  - Mycosis fungoides [Unknown]
